FAERS Safety Report 26074322 (Version 1)
Quarter: 2025Q4

REPORT INFORMATION
  Report Type: Spontaneous
  Country: CA (occurrence: CA)
  Receive Date: 20251121
  Receipt Date: 20251121
  Transmission Date: 20260118
  Serious: Yes (Hospitalization)
  Sender: TEVA
  Company Number: CA-TEVA-VS-3395176

PATIENT
  Sex: Female
  Weight: 65 kg

DRUGS (2)
  1. PREDNISONE [Suspect]
     Active Substance: PREDNISONE
     Indication: Product used for unknown indication
     Route: 065
  2. REMICADE [Suspect]
     Active Substance: INFLIXIMAB
     Indication: Colitis ulcerative
     Dosage: DOSE FORM: POWDER FOR SOLUTION INTRAVENOUS, ROA: INTRAVENOUS DRIP
     Route: 065

REACTIONS (2)
  - Thrombosis [Unknown]
  - Pulmonary thrombosis [Unknown]
